FAERS Safety Report 5111862-7 (Version None)
Quarter: 2006Q3

REPORT INFORMATION
  Report Type: 
  Country: None (occurrence: None)
  Receive Date: 20060922
  Receipt Date: 20060908
  Transmission Date: 20061208
  Serious: Yes (Other)
  Sender: FDA-Public Use
  Company Number: US-AMGEN-US192908

PATIENT
  Age: 77 Year
  Sex: Male

DRUGS (3)
  1. ENBREL [Suspect]
     Indication: PSORIASIS
     Dates: end: 20050101
  2. NEUPOGEN [Concomitant]
  3. EPOGEN [Concomitant]

REACTIONS (3)
  - BONE MARROW FAILURE [None]
  - CONDITION AGGRAVATED [None]
  - MYELODYSPLASTIC SYNDROME [None]
